FAERS Safety Report 4489560-2 (Version None)
Quarter: 2004Q4

REPORT INFORMATION
  Report Type: 
  Country: None (occurrence: None)
  Receive Date: 20041026
  Receipt Date: 20041012
  Transmission Date: 20050328
  Serious: Yes (Hospitalization)
  Sender: FDA-Public Use
  Company Number: 2004238882GB

PATIENT
  Age: 60 Year
  Sex: Male

DRUGS (15)
  1. CELEBREX [Suspect]
     Indication: OSTEOARTHRITIS
     Dosage: 100 MG, BID, ORAL
     Route: 048
     Dates: start: 20040521, end: 20040920
  2. ALDACTONE [Suspect]
     Indication: CARDIAC FAILURE CONGESTIVE
     Dosage: 25 MG, QD, ORAL
     Route: 048
     Dates: start: 20040521, end: 20040920
  3. SIMVASTATIN [Concomitant]
  4. NICORANDIL (NICORANDIL) [Concomitant]
  5. NITROGLYCERIN [Concomitant]
  6. ENALAPRIL MALEATE [Concomitant]
  7. BUMETANIDE [Concomitant]
  8. ACETYLSALICYLIC ACID [Concomitant]
  9. ALLOPURINOL [Concomitant]
  10. REMEDEINE [Concomitant]
  11. DILTIAZEM HCL [Concomitant]
  12. ISOTARD XL [Concomitant]
  13. SALMETEROL (SALMETEROL) [Concomitant]
  14. BECOTIDE (BECLOMETHASONE DIPROPIONATE) [Concomitant]
  15. SALBUTAMOL (SALBUTAMOL) [Concomitant]

REACTIONS (2)
  - DEHYDRATION [None]
  - RENAL FAILURE [None]
